FAERS Safety Report 20452681 (Version 3)
Quarter: 2024Q4

REPORT INFORMATION
  Report Type: Report from Study
  Country: DE (occurrence: DE)
  Receive Date: 20220210
  Receipt Date: 20241129
  Transmission Date: 20250114
  Serious: Yes (Other)
  Sender: RANBAXY
  Company Number: DE-SUN PHARMACEUTICAL INDUSTRIES LTD-2021RR-323822

PATIENT
  Age: 84 Year
  Sex: Male

DRUGS (2)
  1. SONIDEGIB [Suspect]
     Active Substance: SONIDEGIB
     Indication: Basal cell carcinoma
     Dosage: 200 MILLIGRAM, DAILY
     Route: 048
     Dates: start: 20201228
  2. SITAGLIPTIN PHOSPHATE [Concomitant]
     Active Substance: SITAGLIPTIN PHOSPHATE
     Indication: Pre-existing disease
     Dosage: 50 MILLIGRAM, BID
     Route: 048

REACTIONS (4)
  - Muscle spasms [Recovered/Resolved]
  - Muscular weakness [Unknown]
  - Hypotonia [Unknown]
  - Acute kidney injury [Unknown]
